FAERS Safety Report 5112950-1 (Version None)
Quarter: 2006Q3

REPORT INFORMATION
  Report Type: 
  Country: None (occurrence: None)
  Receive Date: 20060920
  Receipt Date: 20060912
  Transmission Date: 20061208
  Serious: Yes (Hospitalization)
  Sender: FDA-Public Use
  Company Number: 225178

PATIENT
  Age: 69 Year
  Sex: Male
  Weight: 70.4 kg

DRUGS (12)
  1. ERLOTINIB (ERLOTINIB) TABLET [Suspect]
     Indication: NON-SMALL CELL LUNG CANCER
     Dosage: 150 MG, QD, ORAL
     Route: 048
     Dates: start: 20051109, end: 20060131
  2. AVASTIN [Suspect]
     Indication: NON-SMALL CELL LUNG CANCER
     Dosage: 15 MG/M2, Q3W, INTRAVENOUS
     Route: 042
     Dates: start: 20060412, end: 20060412
  3. CARBOPLATIN [Suspect]
     Indication: NON-SMALL CELL LUNG CANCER
     Dosage: 3 AUC, Q3W, INTRAVENOUS
     Route: 042
     Dates: start: 20060412
  4. TAXOL [Suspect]
     Indication: NON-SMALL CELL LUNG CANCER
     Dosage: 100 MG/M2, INTRAVENOUS
     Route: 042
     Dates: start: 20060412
  5. NIFEDIPINE [Concomitant]
  6. HYDROCHLOROTHIAZIDE [Concomitant]
  7. PROPRANOLOL (PROPRANOLOL HYDROCHLORIDE) [Concomitant]
  8. FLOMAX [Concomitant]
  9. AMBIEN [Concomitant]
  10. ASPIRIN [Concomitant]
  11. FENTANYL PATCH (FENTANYL CITRATE) [Concomitant]
  12. MORPHINE [Concomitant]

REACTIONS (2)
  - PERIPHERAL ARTERIAL OCCLUSIVE DISEASE [None]
  - POST PROCEDURAL COMPLICATION [None]
